FAERS Safety Report 7854491-4 (Version None)
Quarter: 2011Q4

REPORT INFORMATION
  Report Type: 
  Country: None (occurrence: None)
  Receive Date: 20111026
  Receipt Date: 20111019
  Transmission Date: 20120403
  Serious: Yes (Other)
  Sender: FDA-Public Use
  Company Number: JP-PFIZER INC-2011252415

PATIENT
  Age: 53 Year
  Sex: Male

DRUGS (7)
  1. VALPROIC ACID [Suspect]
     Dosage: UNK
  2. TRAZODONE HCL [Suspect]
     Dosage: 150 MG, DAILY
  3. GABAPENTIN [Suspect]
     Dosage: UNK
  4. CLONAZEPAM [Suspect]
     Dosage: 2 MG, DAILY
  5. TRAZODONE HCL [Suspect]
     Dosage: 75 MG, UNK
  6. ZOLOFT [Suspect]
     Indication: AFFECT LABILITY
     Dosage: 25 MG, DAILY
     Route: 048
  7. TRAZODONE HCL [Suspect]
     Dosage: UNK

REACTIONS (7)
  - CATATONIA [None]
  - DECUBITUS ULCER [None]
  - BRUXISM [None]
  - MUTISM [None]
  - APRAXIA [None]
  - AFFECT LABILITY [None]
  - ANXIETY [None]
